FAERS Safety Report 14994685 (Version 7)
Quarter: 2019Q3

REPORT INFORMATION
  Report Type: Spontaneous
  Country: DE (occurrence: DE)
  Receive Date: 20180611
  Receipt Date: 20190709
  Transmission Date: 20191004
  Serious: Yes (Hospitalization)
  Sender: FDA-Public Use
  Company Number: PHHY2018DE018843

PATIENT
  Age: 67 Year
  Sex: Female
  Weight: 50 kg

DRUGS (30)
  1. CAPECITABINE. [Suspect]
     Active Substance: CAPECITABINE
     Dosage: 1900 MG/M2, UNK (RECEIVED SUBSEQUENT DOSE ON 24 JAN 2012)
     Route: 065
  2. BEVACIZUMAB. [Suspect]
     Active Substance: BEVACIZUMAB
     Dosage: 750 MG, UNK
     Route: 042
     Dates: start: 20120124
  3. TRIAMTEREN [Concomitant]
     Active Substance: TRIAMTERENE
     Indication: PRODUCT USED FOR UNKNOWN INDICATION
     Dosage: UNK
     Route: 065
  4. ENALAPRIL [Concomitant]
     Active Substance: ENALAPRIL
     Indication: PRODUCT USED FOR UNKNOWN INDICATION
     Dosage: 1 OT, QD
     Route: 065
  5. TRIAMTEREN [Concomitant]
     Active Substance: TRIAMTERENE
  6. PACLITAXEL. [Suspect]
     Active Substance: PACLITAXEL
     Dosage: 129 MG, UNK
     Route: 042
     Dates: start: 20120703
  7. AVASTIN [Suspect]
     Active Substance: BEVACIZUMAB
     Dosage: 750 MG, Q3W
     Route: 042
     Dates: start: 20120124
  8. BEVACIZUMAB. [Suspect]
     Active Substance: BEVACIZUMAB
     Indication: BREAST CANCER METASTATIC
     Dosage: 675 MG, UNK
     Route: 042
     Dates: start: 20120306, end: 20120417
  9. BEVACIZUMAB. [Suspect]
     Active Substance: BEVACIZUMAB
     Dosage: 750 MG, UNK
     Route: 042
     Dates: start: 20111213, end: 20120214
  10. HCTZ [Concomitant]
     Active Substance: HYDROCHLOROTHIAZIDE
     Indication: PRODUCT USED FOR UNKNOWN INDICATION
     Dosage: 1 OT, QD
     Route: 065
  11. PACLITAXEL. [Suspect]
     Active Substance: PACLITAXEL
     Dosage: 129 MG, UNK
     Route: 042
     Dates: start: 20120717
  12. AVASTIN [Suspect]
     Active Substance: BEVACIZUMAB
     Dosage: 462.5 MG, Q2W
     Route: 042
     Dates: start: 20120605, end: 20120703
  13. AVASTIN [Suspect]
     Active Substance: BEVACIZUMAB
     Dosage: 425 MG, Q2W
     Route: 042
     Dates: start: 20120807
  14. BEVACIZUMAB. [Suspect]
     Active Substance: BEVACIZUMAB
     Dosage: 462.5 MG, UNK
     Route: 042
     Dates: start: 20120605, end: 20120703
  15. CAPECITABINE. [Suspect]
     Active Substance: CAPECITABINE
     Dosage: 1900 MG/M2, UNK (RECEIVED SUBSEQUENT DOSE ON 03 JAN 2012)
     Route: 065
  16. BEVACIZUMAB. [Suspect]
     Active Substance: BEVACIZUMAB
     Dosage: 425 MG, UNK
     Route: 042
     Dates: start: 20120807
  17. PACLITAXEL. [Suspect]
     Active Substance: PACLITAXEL
     Dosage: 129 MG, UNK
     Route: 042
     Dates: start: 20120828
  18. AVASTIN [Suspect]
     Active Substance: BEVACIZUMAB
     Indication: BREAST CANCER METASTATIC
     Dosage: 750 MG, Q3W
     Route: 042
     Dates: start: 20111213, end: 20120214
  19. AVASTIN [Suspect]
     Active Substance: BEVACIZUMAB
     Dosage: 675 MG, Q2W
     Route: 042
     Dates: start: 20120327
  20. CAPECITABINE. [Suspect]
     Active Substance: CAPECITABINE
     Dosage: 1900 MG/M2, UNK
     Route: 065
     Dates: start: 20120124, end: 20120306
  21. BEVACIZUMAB. [Suspect]
     Active Substance: BEVACIZUMAB
     Dosage: 675 MG, UNK
     Route: 042
     Dates: start: 20120327
  22. PANTOPRAZOL [Concomitant]
     Active Substance: PANTOPRAZOLE SODIUM
     Indication: DYSPEPSIA
     Dosage: UNK
     Route: 065
  23. AVASTIN [Suspect]
     Active Substance: BEVACIZUMAB
     Dosage: 675 MG, Q3W
     Route: 042
     Dates: start: 20120306, end: 20120417
  24. HYDROCHLOROTHIAZID [Concomitant]
     Active Substance: HYDROCHLOROTHIAZIDE
     Indication: PRODUCT USED FOR UNKNOWN INDICATION
     Dosage: 1 OT, QD
     Route: 065
  25. PACLITAXEL. [Suspect]
     Active Substance: PACLITAXEL
     Indication: BREAST CANCER
     Dosage: 129 MG, UNK
     Route: 042
     Dates: start: 20120619
  26. PACLITAXEL. [Suspect]
     Active Substance: PACLITAXEL
     Dosage: 129 MG, UNK
     Route: 042
     Dates: start: 20120807
  27. PACLITAXEL. [Suspect]
     Active Substance: PACLITAXEL
     Dosage: SUBSEQUENT DOSES WERE RECEIVED ON 19/JUN/2012, 03/JUL/2012, 17/JUL/2012, 07/AUG/2012, 28/AUG/2012, 1
     Route: 042
  28. AVASTIN [Suspect]
     Active Substance: BEVACIZUMAB
     Dosage: 750 MG, Q2W
     Route: 042
     Dates: start: 20120214, end: 20120214
  29. CAPECITABINE. [Suspect]
     Active Substance: CAPECITABINE
     Indication: BREAST CANCER
     Dosage: 2500 MG/M2, UNK
     Route: 065
     Dates: start: 20111122
  30. BEVACIZUMAB. [Suspect]
     Active Substance: BEVACIZUMAB
     Dosage: 750 MG, UNK
     Route: 065
     Dates: start: 20120214, end: 20120214

REACTIONS (10)
  - Epistaxis [Unknown]
  - Haemoglobin decreased [Recovered/Resolved]
  - Musculoskeletal chest pain [Recovered/Resolved]
  - Dry mouth [Unknown]
  - Chest pain [Recovered/Resolved]
  - Taste disorder [Unknown]
  - Platelet count decreased [Recovered/Resolved]
  - Decreased appetite [Recovered/Resolved]
  - Alanine aminotransferase abnormal [Unknown]
  - Blood pressure increased [Unknown]

NARRATIVE: CASE EVENT DATE: 20120124
